FAERS Safety Report 6122578-2 (Version None)
Quarter: 2009Q1

REPORT INFORMATION
  Report Type: 
  Country: None (occurrence: None)
  Receive Date: 20090310
  Receipt Date: 20090226
  Transmission Date: 20090719
  Serious: Yes (Hospitalization)
  Sender: FDA-Public Use
  Company Number: THYM-1000897

PATIENT
  Age: 51 Year
  Sex: Male
  Weight: 78.7 kg

DRUGS (10)
  1. THYMOGLOBULIN [Suspect]
     Indication: LIVER TRANSPLANT
     Dosage: 100 MG, QD, INTRAVENOUS
     Route: 042
     Dates: start: 20090104, end: 20090104
  2. THYMOGLOBULIN [Suspect]
     Indication: LIVER TRANSPLANT
     Dosage: 100 MG, QD, INTRAVENOUS
     Route: 042
     Dates: start: 20090109, end: 20090109
  3. THYMOGLOBULIN [Suspect]
     Indication: LIVER TRANSPLANT
     Dosage: 100 MG, QD, INTRAVENOUS
     Route: 042
     Dates: start: 20090112, end: 20090112
  4. METHYLPREDNISOLONE 16MG TAB [Concomitant]
  5. PREDNISONE TAB [Concomitant]
  6. CYCLOSPORINE [Concomitant]
  7. AZATHIOPRINE [Concomitant]
  8. HEPARIN [Concomitant]
  9. DOCUSATE SODIUM (DOCOSATE SODIUM) [Concomitant]
  10. FUROSEMIDE [Concomitant]

REACTIONS (2)
  - LIVER TRANSPLANT REJECTION [None]
  - THERAPEUTIC RESPONSE DECREASED [None]
